FAERS Safety Report 17023094 (Version 1)
Quarter: 2019Q4

REPORT INFORMATION
  Report Type: Spontaneous
  Country: US (occurrence: US)
  Receive Date: 20191112
  Receipt Date: 20191112
  Transmission Date: 20200122
  Serious: No
  Sender: FDA-Public Use
  Company Number: US-VIFOR (INTERNATIONAL) INC.-VIT-2019-11261

PATIENT
  Sex: Female

DRUGS (14)
  1. ACETAMIN [Concomitant]
     Active Substance: ACETAMINOPHEN
     Dates: start: 20171113
  2. CLOPIDOGREL [Concomitant]
     Active Substance: CLOPIDOGREL BISULFATE
     Dates: start: 20171113
  3. FUROSEMIDE. [Concomitant]
     Active Substance: FUROSEMIDE
     Dates: start: 20171113
  4. AMLOD/ATORVA [Concomitant]
     Dosage: 5 TO 10 MG
     Dates: start: 20190917
  5. REPATHA [Concomitant]
     Active Substance: EVOLOCUMAB
     Dates: start: 20190722
  6. ATORVASTATIN [Concomitant]
     Active Substance: ATORVASTATIN
     Dates: start: 20171113
  7. TRESIBA FLEX [Concomitant]
     Dates: start: 20190722
  8. VELTASSA [Suspect]
     Active Substance: PATIROMER
     Indication: HYPERKALAEMIA
     Route: 048
     Dates: start: 20190918
  9. CARVEDILOL. [Concomitant]
     Active Substance: CARVEDILOL
     Dates: start: 20171113
  10. CITALOPRAM [Concomitant]
     Active Substance: CITALOPRAM HYDROBROMIDE
     Dates: start: 20190722
  11. LEVOTHYROXINE. [Concomitant]
     Active Substance: LEVOTHYROXINE
     Dates: start: 20171113
  12. SODIUM BICAR [Concomitant]
     Dates: start: 20190722
  13. ASPIRIN. [Concomitant]
     Active Substance: ASPIRIN
     Dates: start: 20190722
  14. MIRALAX [Concomitant]
     Active Substance: POLYETHYLENE GLYCOL 3350
     Dosage: 3350 NF
     Dates: start: 20171113

REACTIONS (3)
  - Diarrhoea [Not Recovered/Not Resolved]
  - Product dose omission [Unknown]
  - Malaise [Unknown]

NARRATIVE: CASE EVENT DATE: 2019
